FAERS Safety Report 26203872 (Version 1)
Quarter: 2025Q4

REPORT INFORMATION
  Report Type: Spontaneous
  Country: EU (occurrence: EU)
  Receive Date: 20251226
  Receipt Date: 20251226
  Transmission Date: 20260118
  Serious: Yes (Hospitalization, Other)
  Sender: BRISTOL-MYERS SQUIBB COMPANY
  Company Number: None

PATIENT
  Age: 75 Year
  Sex: Female
  Weight: 89.2 kg

DRUGS (2)
  1. YERVOY [Suspect]
     Active Substance: IPILIMUMAB
     Indication: Superficial spreading melanoma stage IV
     Dosage: C1
     Route: 042
     Dates: start: 20251114, end: 20251114
  2. OPDIVO [Suspect]
     Active Substance: NIVOLUMAB
     Indication: Superficial spreading melanoma stage IV
     Dosage: C1
     Route: 042
     Dates: start: 20251114, end: 20251114

REACTIONS (2)
  - Eosinophilia [Not Recovered/Not Resolved]
  - Acute kidney injury [Recovering/Resolving]

NARRATIVE: CASE EVENT DATE: 20251123
